FAERS Safety Report 6410087-2 (Version None)
Quarter: 2009Q4

REPORT INFORMATION
  Report Type: 
  Country: None (occurrence: None)
  Receive Date: 20091022
  Receipt Date: 20091016
  Transmission Date: 20100525
  Serious: Yes (Hospitalization, Other)
  Sender: FDA-Public Use
  Company Number: US-ASTRAZENECA-2009SE20686

PATIENT
  Age: 54 Year
  Sex: Male
  Weight: 79.4 kg

DRUGS (1)
  1. CRESTOR [Suspect]
     Route: 048

REACTIONS (6)
  - ASTHENIA [None]
  - DIABETES MELLITUS [None]
  - EPISTAXIS [None]
  - HEADACHE [None]
  - HEPATIC ENZYME INCREASED [None]
  - MYALGIA [None]
